FAERS Safety Report 4784044-6 (Version None)
Quarter: 2005Q3

REPORT INFORMATION
  Report Type: 
  Country: None (occurrence: None)
  Receive Date: 20050930
  Receipt Date: 20050922
  Transmission Date: 20060218
  Serious: Yes (Other)
  Sender: FDA-Public Use
  Company Number: 2005UW14210

PATIENT
  Age: 77 Year
  Sex: Male

DRUGS (10)
  1. CASODEX [Suspect]
     Route: 048
  2. SEROQUEL [Suspect]
     Route: 048
  3. ADALAT [Concomitant]
  4. FLOMAX [Concomitant]
  5. GLUCONORM [Concomitant]
  6. NOVOLIN [Concomitant]
     Route: 058
  7. PERIRADOPRIL [Concomitant]
  8. PLAVIX [Concomitant]
  9. SERAX [Concomitant]
  10. TENORMIN [Concomitant]

REACTIONS (1)
  - NEUTROPENIA [None]
